FAERS Safety Report 7328988-X (Version None)
Quarter: 2011Q1

REPORT INFORMATION
  Report Type: 
  Country: None (occurrence: None)
  Receive Date: 20110303
  Receipt Date: 20110221
  Transmission Date: 20110831
  Serious: Yes (Hospitalization)
  Sender: FDA-Public Use
  Company Number: JP-ABBOTT-10P-087-0627368-00

PATIENT
  Sex: Female

DRUGS (13)
  1. METHOTREXATE [Concomitant]
     Indication: RHEUMATOID ARTHRITIS
     Route: 048
     Dates: start: 20090912, end: 20091106
  2. METHOTREXATE [Concomitant]
     Dates: start: 20091107, end: 20100212
  3. AMLODIPINE [Concomitant]
     Indication: HYPERTENSION
     Route: 048
     Dates: start: 20030901
  4. FOLIAMIN [Concomitant]
     Indication: ADVERSE DRUG REACTION
     Route: 048
     Dates: start: 20090914, end: 20100214
  5. PREDNISOLONE [Concomitant]
     Indication: RHEUMATOID ARTHRITIS
     Route: 048
     Dates: start: 20090721
  6. HYALEIN [Concomitant]
     Indication: DRY EYE
     Dosage: EACH EYE
     Dates: start: 20071113
  7. PREDNISOLONE [Concomitant]
  8. MUCOSTA [Concomitant]
     Indication: GASTRITIS
     Route: 048
     Dates: start: 20100115
  9. FOLIAMIN [Concomitant]
     Indication: PROPHYLAXIS
  10. HUMIRA [Suspect]
     Indication: RHEUMATOID ARTHRITIS
     Route: 058
     Dates: start: 20090911, end: 20100129
  11. TAKEPRON [Concomitant]
     Indication: GASTRITIS
     Route: 048
     Dates: start: 20090622
  12. RIZE [Concomitant]
     Indication: INSOMNIA
     Route: 048
     Dates: start: 20090707
  13. KETOPROFEN [Concomitant]
     Indication: RHEUMATOID ARTHRITIS
     Dates: start: 20100109

REACTIONS (2)
  - ENTERITIS INFECTIOUS [None]
  - PLEURISY [None]
